FAERS Safety Report 22003939 (Version 1)
Quarter: 2023Q1

REPORT INFORMATION
  Report Type: Spontaneous
  Country: BR (occurrence: BR)
  Receive Date: 20230217
  Receipt Date: 20230217
  Transmission Date: 20230418
  Serious: Yes (Hospitalization, Disabling, Other)
  Sender: FDA-Public Use
  Company Number: BR-TEVA BRAZIL-2023-BR-2855590

PATIENT
  Age: 38 Year
  Sex: Female

DRUGS (1)
  1. COPAXONE [Suspect]
     Active Substance: GLATIRAMER ACETATE
     Indication: Multiple sclerosis
     Dosage: COPAXONE 20 MG/ML
     Route: 065
     Dates: start: 2000

REACTIONS (24)
  - Lipodystrophy acquired [Not Recovered/Not Resolved]
  - Thyroid cancer [Recovered/Resolved]
  - Neuropathy peripheral [Not Recovered/Not Resolved]
  - HIV infection [Not Recovered/Not Resolved]
  - Accident [Recovered/Resolved with Sequelae]
  - Ligament rupture [Recovered/Resolved with Sequelae]
  - Gait inability [Recovered/Resolved with Sequelae]
  - Choking [Recovered/Resolved]
  - Asphyxia [Recovered/Resolved]
  - Hyperaesthesia [Not Recovered/Not Resolved]
  - Movement disorder [Not Recovered/Not Resolved]
  - Musculoskeletal stiffness [Not Recovered/Not Resolved]
  - Injection site injury [Not Recovered/Not Resolved]
  - Balance disorder [Not Recovered/Not Resolved]
  - Pain in extremity [Not Recovered/Not Resolved]
  - Discomfort [Recovered/Resolved]
  - Feeling hot [Recovered/Resolved]
  - Dyspnoea [Recovered/Resolved]
  - Erythema [Recovered/Resolved]
  - Tachycardia [Recovered/Resolved]
  - Feeling cold [Recovered/Resolved]
  - Chills [Recovered/Resolved]
  - Psychological trauma [Unknown]
  - Fear of death [Unknown]

NARRATIVE: CASE EVENT DATE: 20080101
